FAERS Safety Report 20219487 (Version 3)
Quarter: 2022Q1

REPORT INFORMATION
  Report Type: Report from Study
  Country: US (occurrence: US)
  Receive Date: 20211222
  Receipt Date: 20220219
  Transmission Date: 20220423
  Serious: Yes (Hospitalization, Other)
  Sender: FDA-Public Use
  Company Number: US-ABBVIE-21K-163-4208542-00

PATIENT
  Sex: Male

DRUGS (16)
  1. HUMIRA [Suspect]
     Active Substance: ADALIMUMAB
     Indication: Rheumatoid arthritis
     Route: 058
     Dates: start: 201302, end: 20170502
  2. HUMIRA [Suspect]
     Active Substance: ADALIMUMAB
     Route: 058
     Dates: start: 20211217
  3. METHOTREXATE [Suspect]
     Active Substance: METHOTREXATE
     Indication: Rheumatoid arthritis
     Route: 065
     Dates: end: 2016
  4. METHOTREXATE [Suspect]
     Active Substance: METHOTREXATE
     Route: 065
     Dates: start: 2016, end: 2021
  5. HYDROXYCHLOROQUINE [Concomitant]
     Active Substance: HYDROXYCHLOROQUINE
     Indication: Rheumatoid arthritis
  6. FOLIC ACID [Concomitant]
     Active Substance: FOLIC ACID
     Indication: Vitamin supplementation
  7. PREDNISONE [Concomitant]
     Active Substance: PREDNISONE
     Indication: Rheumatoid arthritis
  8. ATORVASTATIN [Concomitant]
     Active Substance: ATORVASTATIN
     Indication: Blood cholesterol increased
  9. FLONASE [Concomitant]
     Active Substance: FLUTICASONE PROPIONATE
     Indication: Hypersensitivity
  10. ALBUTEROL [Concomitant]
     Active Substance: ALBUTEROL
     Indication: Asthma
  11. SYMBICORT [Concomitant]
     Active Substance: BUDESONIDE\FORMOTEROL FUMARATE DIHYDRATE
     Indication: Asthma
  12. VITAMIN C [Concomitant]
     Active Substance: ASCORBIC ACID
     Indication: Supplementation therapy
  13. MODERNA COVID-19 VACCINE [Concomitant]
     Active Substance: ELASOMERAN
     Indication: COVID-19 immunisation
     Route: 030
     Dates: start: 202101, end: 202101
  14. MODERNA COVID-19 VACCINE [Concomitant]
     Active Substance: ELASOMERAN
     Route: 030
     Dates: start: 202102, end: 202102
  15. MODERNA COVID-19 VACCINE [Concomitant]
     Active Substance: ELASOMERAN
     Route: 030
     Dates: start: 20210823, end: 20210823
  16. PEPCID [Concomitant]
     Active Substance: FAMOTIDINE
     Indication: Dyspepsia

REACTIONS (20)
  - Spinal osteoarthritis [Recovering/Resolving]
  - Atrial fibrillation [Recovered/Resolved]
  - Chest pain [Recovered/Resolved]
  - Atrial fibrillation [Recovering/Resolving]
  - Myocardial infarction [Recovered/Resolved]
  - Sleep apnoea syndrome [Recovering/Resolving]
  - SARS-CoV-2 test positive [Recovered/Resolved]
  - Palpitations [Recovering/Resolving]
  - Throat irritation [Recovered/Resolved]
  - Sinus disorder [Recovering/Resolving]
  - Sinus disorder [Recovered/Resolved]
  - Upper-airway cough syndrome [Recovered/Resolved]
  - Hepatic enzyme increased [Unknown]
  - Chest pain [Recovered/Resolved]
  - Chest pain [Recovered/Resolved]
  - Pneumonia [Recovered/Resolved]
  - Upper respiratory tract infection [Recovered/Resolved]
  - Hepatic enzyme increased [Not Recovered/Not Resolved]
  - Rheumatoid arthritis [Recovered/Resolved]
  - Rheumatoid arthritis [Not Recovered/Not Resolved]

NARRATIVE: CASE EVENT DATE: 20160101
